FAERS Safety Report 5727336-6 (Version None)
Quarter: 2008Q2

REPORT INFORMATION
  Report Type: 
  Country: None (occurrence: None)
  Receive Date: 20080505
  Receipt Date: 20080421
  Transmission Date: 20081010
  Serious: Yes (Other)
  Sender: FDA-Public Use
  Company Number: DZ-SANOFI-SYNTHELABO-A01200804882

PATIENT
  Age: 63 Year
  Sex: Female
  Weight: 70 kg

DRUGS (1)
  1. ZOLPIDEM [Suspect]
     Indication: INSOMNIA
     Route: 048
     Dates: start: 20080101, end: 20080412

REACTIONS (4)
  - DELIRIUM [None]
  - HALLUCINATION [None]
  - RESPIRATORY DEPRESSION [None]
  - THERAPY REGIMEN CHANGED [None]
